FAERS Safety Report 14695695 (Version 1)
Quarter: 2018Q1

REPORT INFORMATION
  Report Type: Spontaneous
  Country: US (occurrence: US)
  Receive Date: 20180328
  Receipt Date: 20180328
  Transmission Date: 20180509
  Serious: Yes (Other)
  Sender: FDA-Public Use
  Company Number: None

PATIENT
  Age: 32 Year
  Sex: Male
  Weight: 113 kg

DRUGS (2)
  1. GAMMAGARD LIQUID [Suspect]
     Active Substance: HUMAN IMMUNOGLOBULIN G
     Indication: IMMUNE THROMBOCYTOPENIC PURPURA
     Dates: start: 20180302, end: 20180315
  2. RITUXIMAB. [Concomitant]
     Active Substance: RITUXIMAB
     Dates: start: 20180316, end: 20180316

REACTIONS (3)
  - Hepatitis B surface antibody positive [None]
  - False positive investigation result [None]
  - Hepatitis B core antibody positive [None]

NARRATIVE: CASE EVENT DATE: 20180314
